FAERS Safety Report 9335230 (Version 1)
Quarter: 2013Q2

REPORT INFORMATION
  Report Type: Spontaneous
  Country: US (occurrence: US)
  Receive Date: 20130606
  Receipt Date: 20130606
  Transmission Date: 20140414
  Serious: Yes (Death)
  Sender: FDA-Public Use
  Company Number: US-GILEAD-2013-0075472

PATIENT
  Sex: Male

DRUGS (2)
  1. LETAIRIS [Suspect]
     Indication: PRODUCT USED FOR UNKNOWN INDICATION
     Dates: start: 20130214
  2. LETAIRIS [Suspect]
     Dosage: 5 MG, QD
     Dates: start: 20130213

REACTIONS (3)
  - Death [Fatal]
  - General physical health deterioration [Unknown]
  - Dyspnoea [Unknown]
